FAERS Safety Report 25271890 (Version 1)
Quarter: 2025Q2

REPORT INFORMATION
  Report Type: Spontaneous
  Country: GB (occurrence: GB)
  Receive Date: 20250506
  Receipt Date: 20250506
  Transmission Date: 20250716
  Serious: Yes (Other)
  Sender: ROCHE
  Company Number: None

PATIENT
  Age: 41 Year

DRUGS (3)
  1. OCRELIZUMAB [Suspect]
     Active Substance: OCRELIZUMAB
     Indication: Multiple sclerosis
     Route: 065
  2. AMITRIPTYLINE [Concomitant]
     Active Substance: AMITRIPTYLINE
  3. PREGABALIN [Concomitant]
     Active Substance: PREGABALIN
     Dosage: 150MG CAPSULE BD

REACTIONS (2)
  - Inflammatory bowel disease [Recovered/Resolved]
  - Diarrhoea [Recovered/Resolved]
